FAERS Safety Report 4870119-X (Version None)
Quarter: 2005Q4

REPORT INFORMATION
  Report Type: 
  Country: None (occurrence: None)
  Receive Date: 20051228
  Receipt Date: 20051214
  Transmission Date: 20060501
  Serious: Yes (Hospitalization, Other)
  Sender: FDA-Public Use
  Company Number: USA-2005-0022005

PATIENT
  Age: 52 Year
  Sex: Female
  Weight: 63.5 kg

DRUGS (22)
  1. MORPHINE SULFATE [Suspect]
     Dates: end: 20051001
  2. PEG-INTRON [Suspect]
     Indication: HEPATITIS C
     Dosage: SUBCUTANEOUS
     Route: 058
     Dates: start: 20050101
  3. PEG-INTRON [Suspect]
     Indication: HEPATITIS C
     Dosage: SUBCUTANEOUS
     Route: 058
     Dates: start: 20050925
  4. ASPIRIN [Concomitant]
  5. BUSPAR [Concomitant]
  6. CALCIUM GLUCONATE [Concomitant]
  7. GLUCOSAMINE W/CHONDROITIN SULFATES (ASCORBIC ACID, CHONDROITIN SULFATE [Concomitant]
  8. HYDROMORPHONE HCL [Concomitant]
  9. INDERAL [Concomitant]
  10. LECITHIN (LECITHIN) [Concomitant]
  11. LEVOTHYROXINE SODIUM [Concomitant]
  12. MORPHINE SULFATE FAMILY (MORPHINE SULFATE) [Concomitant]
  13. MULTIVITAMINS (THIAMINE HYDROCHLORIDE, RIBOFLAVIN, RETINOL, PANTHENOL, [Concomitant]
  14. OMEGA-3 (OMEGA-3 TRIGLYCERIDES) [Concomitant]
  15. PROMETHAZINE HYDROCHLORIDE TAB [Concomitant]
  16. VITAMIN A AND D (ERGOCALCIFEROL, RETINOL) [Concomitant]
  17. VITAMIN B COMPLEX CAP [Concomitant]
  18. VITAMIN C (ASCORBIC ACID) [Concomitant]
  19. VITAMIN E [Concomitant]
  20. WELLBUTRIN [Concomitant]
  21. FLAXSEED OIL [Concomitant]
  22. CALCIUM GLUCONATE [Concomitant]

REACTIONS (12)
  - ASTHENIA [None]
  - BLOOD POTASSIUM DECREASED [None]
  - DEHYDRATION [None]
  - DISTURBANCE IN ATTENTION [None]
  - DRUG WITHDRAWAL SYNDROME [None]
  - INJECTION SITE BRUISING [None]
  - INJECTION SITE INDURATION [None]
  - MEMORY IMPAIRMENT [None]
  - MUSCULAR WEAKNESS [None]
  - MYALGIA [None]
  - PNEUMONIA [None]
  - WEIGHT DECREASED [None]
